FAERS Safety Report 19678800 (Version 2)
Quarter: 2025Q4

REPORT INFORMATION
  Report Type: Spontaneous
  Country: EU (occurrence: EU)
  Receive Date: 20210809
  Receipt Date: 20251202
  Transmission Date: 20260118
  Serious: Yes (Other)
  Sender: MYLAN
  Company Number: EU-BRISTOL-MYERS SQUIBB COMPANY-B017604

PATIENT
  Age: 41 Year
  Sex: Female

DRUGS (24)
  1. VANCOMYCIN [Suspect]
     Active Substance: VANCOMYCIN
     Indication: Product used for unknown indication
     Dosage: 1 GRAM
  2. VANCOMYCIN [Suspect]
     Active Substance: VANCOMYCIN
     Dosage: 1 GRAM
     Route: 065
  3. VANCOMYCIN [Suspect]
     Active Substance: VANCOMYCIN
     Dosage: 1 GRAM
     Route: 065
  4. VANCOMYCIN [Suspect]
     Active Substance: VANCOMYCIN
     Dosage: 1 GRAM
  5. CEFTAZIDIME [Suspect]
     Active Substance: CEFTAZIDIME
     Indication: Product used for unknown indication
     Dosage: 6 GRAM (3X 2G DAILY)
  6. CEFTAZIDIME [Suspect]
     Active Substance: CEFTAZIDIME
     Dosage: 6 GRAM (3X 2G DAILY)
     Route: 065
  7. CEFTAZIDIME [Suspect]
     Active Substance: CEFTAZIDIME
     Dosage: 6 GRAM (3X 2G DAILY)
     Route: 065
  8. CEFTAZIDIME [Suspect]
     Active Substance: CEFTAZIDIME
     Dosage: 6 GRAM (3X 2G DAILY)
  9. CYTARABINE [Suspect]
     Active Substance: CYTARABINE
     Indication: Acute myeloid leukaemia
     Dosage: 200 MILLIGRAM/SQ. METER, QD (100 MG/M2, 2X/DAY (BID))
  10. CYTARABINE [Suspect]
     Active Substance: CYTARABINE
     Dosage: 200 MILLIGRAM/SQ. METER, QD (100 MG/M2, 2X/DAY (BID))
     Route: 065
  11. CYTARABINE [Suspect]
     Active Substance: CYTARABINE
     Dosage: 200 MILLIGRAM/SQ. METER, QD (100 MG/M2, 2X/DAY (BID))
     Route: 065
  12. CYTARABINE [Suspect]
     Active Substance: CYTARABINE
     Dosage: 200 MILLIGRAM/SQ. METER, QD (100 MG/M2, 2X/DAY (BID))
  13. ETOPOSIDE [Suspect]
     Active Substance: ETOPOSIDE
     Indication: Acute myeloid leukaemia
     Dosage: 100 MILLIGRAM/SQ. METER, QD
  14. ETOPOSIDE [Suspect]
     Active Substance: ETOPOSIDE
     Dosage: 100 MILLIGRAM/SQ. METER, QD
     Route: 065
  15. ETOPOSIDE [Suspect]
     Active Substance: ETOPOSIDE
     Dosage: 100 MILLIGRAM/SQ. METER, QD
     Route: 065
  16. ETOPOSIDE [Suspect]
     Active Substance: ETOPOSIDE
     Dosage: 100 MILLIGRAM/SQ. METER, QD
  17. AMPHOTERICIN B [Suspect]
     Active Substance: AMPHOTERICIN B
     Indication: Product used for unknown indication
     Dosage: UNK
  18. AMPHOTERICIN B [Suspect]
     Active Substance: AMPHOTERICIN B
     Dosage: UNK
     Route: 065
  19. AMPHOTERICIN B [Suspect]
     Active Substance: AMPHOTERICIN B
     Dosage: UNK
     Route: 065
  20. AMPHOTERICIN B [Suspect]
     Active Substance: AMPHOTERICIN B
     Dosage: UNK
  21. DAUNORUBICIN [Suspect]
     Active Substance: DAUNORUBICIN
     Indication: Acute myeloid leukaemia
     Dosage: 30 MILLIGRAM/SQ. METER, QD (30 MG/M2, 1X/DAY)
  22. DAUNORUBICIN [Suspect]
     Active Substance: DAUNORUBICIN
     Dosage: 30 MILLIGRAM/SQ. METER, QD (30 MG/M2, 1X/DAY)
     Route: 065
  23. DAUNORUBICIN [Suspect]
     Active Substance: DAUNORUBICIN
     Dosage: 30 MILLIGRAM/SQ. METER, QD (30 MG/M2, 1X/DAY)
     Route: 065
  24. DAUNORUBICIN [Suspect]
     Active Substance: DAUNORUBICIN
     Dosage: 30 MILLIGRAM/SQ. METER, QD (30 MG/M2, 1X/DAY)

REACTIONS (4)
  - Neutropenia [Recovered/Resolved]
  - Hidradenitis [Recovered/Resolved]
  - White blood cell count increased [Recovered/Resolved]
  - Pyrexia [Recovered/Resolved]
